FAERS Safety Report 17269042 (Version 1)
Quarter: 2020Q1

REPORT INFORMATION
  Report Type: Spontaneous
  Country: US (occurrence: US)
  Receive Date: 20200114
  Receipt Date: 20200114
  Transmission Date: 20200409
  Serious: Yes (Other)
  Sender: FDA-Public Use
  Company Number: None

PATIENT
  Age: 61 Year
  Sex: Male
  Weight: 92.25 kg

DRUGS (1)
  1. ENTYVIO [Suspect]
     Active Substance: VEDOLIZUMAB
     Indication: COLITIS
     Route: 042
     Dates: start: 20191218, end: 20191223

REACTIONS (5)
  - Myalgia [None]
  - Hypertension [None]
  - Headache [None]
  - Bone pain [None]
  - Ocular discomfort [None]

NARRATIVE: CASE EVENT DATE: 20191218
